FAERS Safety Report 5088475-9 (Version None)
Quarter: 2006Q3

REPORT INFORMATION
  Report Type: 
  Country: None (occurrence: None)
  Receive Date: 20060823
  Receipt Date: 20060823
  Transmission Date: 20061208
  Serious: No
  Sender: FDA-Public Use
  Company Number: None

PATIENT
  Sex: Female
  Weight: 53.5244 kg

DRUGS (1)
  1. DURAHIST - MFG. PROETHIC LABS LLC. 66869 [Suspect]
     Indication: ILL-DEFINED DISORDER
     Dosage: 1/2 TO ONE TABLET   TWICE A DAY
     Dates: start: 20060816

REACTIONS (1)
  - VISION BLURRED [None]
